FAERS Safety Report 14006631 (Version 1)
Quarter: 2017Q3

REPORT INFORMATION
  Report Type: Spontaneous
  Country: IT (occurrence: IT)
  Receive Date: 20170925
  Receipt Date: 20170925
  Transmission Date: 20171128
  Serious: Yes (Hospitalization)
  Sender: FDA-Public Use
  Company Number: IT-B.I. PHARMACEUTICALS,INC./RIDGEFIELD-2017-BI-051208

PATIENT
  Age: 80 Year
  Sex: Male

DRUGS (1)
  1. PRADAXA [Suspect]
     Active Substance: DABIGATRAN ETEXILATE MESYLATE
     Indication: ATRIAL FIBRILLATION
     Route: 065

REACTIONS (7)
  - Coagulation time prolonged [Unknown]
  - Rectal haemorrhage [Recovered/Resolved]
  - Diarrhoea [Unknown]
  - Gastrointestinal angiodysplasia [Unknown]
  - Diverticulum [Unknown]
  - Haemodynamic instability [Unknown]
  - Renal failure [Unknown]
